FAERS Safety Report 9859818 (Version 1)
Quarter: 2014Q1

REPORT INFORMATION
  Report Type: Spontaneous
  Country: US (occurrence: US)
  Receive Date: 20140131
  Receipt Date: 20140131
  Transmission Date: 20141002
  Serious: Yes (Other)
  Sender: FDA-Public Use
  Company Number: US-ALLERGAN-1401285US

PATIENT
  Age: 51 Year
  Sex: Female

DRUGS (5)
  1. LATISSE 0.03% [Suspect]
     Indication: PRODUCT USED FOR UNKNOWN INDICATION
     Dosage: 1 DROP PER APPLICATOR, USED IN BOTH UPPER EYELIDS
     Route: 061
     Dates: start: 20140121, end: 20140122
  2. MULTIVITAMIN [Concomitant]
     Indication: SUPPLEMENTATION THERAPY
     Dosage: UNK
  3. VITAMIN D [Concomitant]
     Indication: SUPPLEMENTATION THERAPY
     Dosage: UNK
  4. VITAMIN C [Concomitant]
     Indication: SUPPLEMENTATION THERAPY
     Dosage: UNK
  5. FISH OIL [Concomitant]
     Indication: SUPPLEMENTATION THERAPY
     Dosage: UNK

REACTIONS (9)
  - Swelling face [Not Recovered/Not Resolved]
  - Rash erythematous [Not Recovered/Not Resolved]
  - Blister [Unknown]
  - Feeling hot [Unknown]
  - Erythema [Unknown]
  - Wrong technique in drug usage process [Unknown]
  - Eyelids pruritus [Unknown]
  - Headache [Recovering/Resolving]
  - Scleral hyperaemia [Unknown]
